FAERS Safety Report 15258653 (Version 1)
Quarter: 2018Q3

REPORT INFORMATION
  Report Type: Report from Study
  Country: FR (occurrence: FR)
  Receive Date: 20180809
  Receipt Date: 20180809
  Transmission Date: 20181010
  Serious: Yes (Other)
  Sender: FDA-Public Use
  Company Number: FR-TEVA-2018-FR-936608

PATIENT
  Sex: Female

DRUGS (17)
  1. METHOTREXATE. [Suspect]
     Active Substance: METHOTREXATE
     Route: 048
     Dates: start: 20170810, end: 20170907
  2. PEGASPARGASE [Suspect]
     Active Substance: PEGASPARGASE
     Dosage: 1X/DAY:QD, 042, INJECTION,
     Route: 042
     Dates: start: 20170906, end: 20170906
  3. DUPHALAC [Concomitant]
     Active Substance: LACTULOSE
     Indication: CONSTIPATION
  4. 6?MERCAPTOPURINE MONOHYDRATE [Suspect]
     Active Substance: MERCAPTOPURINE
     Dosage: 32 MILLIGRAM DAILY; 32 MG, 1X/DAY:QD,,,
     Route: 048
     Dates: start: 20170802, end: 20170919
  5. METHOTREXATE. [Suspect]
     Active Substance: METHOTREXATE
     Dosage: 12 MILLIGRAM DAILY; 12 MG, 1X/DAY:QD
     Route: 037
     Dates: start: 20170803, end: 20170928
  6. PEGASPARGASE [Suspect]
     Active Substance: PEGASPARGASE
     Indication: ACUTE LYMPHOCYTIC LEUKAEMIA
     Dosage: 1575 IU (INTERNATIONAL UNIT) DAILY; 1575 IU, 1X/DAY:QD
     Route: 042
     Dates: start: 20170809, end: 20170809
  7. SULFAMETHOXAZOLE AND TRIMETHOPRIM [Concomitant]
     Active Substance: SULFAMETHOXAZOLE\TRIMETHOPRIM
     Indication: ANTIFUNGAL PROPHYLAXIS
  8. VINCRISTINE [Suspect]
     Active Substance: VINCRISTINE
     Dosage: 0.95 MG, 1X/DAY:QD,
     Route: 042
     Dates: start: 20170830, end: 20170830
  9. PEGASPARGASE [Suspect]
     Active Substance: PEGASPARGASE
     Dosage: 1575 IU (INTERNATIONAL UNIT) DAILY; 04?OCT?2017, 04?OCT?2017,,1575 IU,, 1 DA?1 DA?DURA,, 1575 IU, 1X
     Route: 042
     Dates: start: 20171004, end: 20171004
  10. DEXAMETHASONE. [Suspect]
     Active Substance: DEXAMETHASONE
     Dosage: 4 MG UNK,,
     Route: 048
     Dates: start: 20170903, end: 20170903
  11. VINCRISTINE [Suspect]
     Active Substance: VINCRISTINE
     Indication: ACUTE LYMPHOCYTIC LEUKAEMIA
     Dosage: .9 MILLIGRAM DAILY; 0.9 MG, 1X/DAY:QD
     Route: 042
     Dates: start: 20171004, end: 20171004
  12. VINCRISTINE [Suspect]
     Active Substance: VINCRISTINE
     Dosage: 1X/DAY:QD.
     Route: 042
     Dates: start: 20170906, end: 20170906
  13. VINCRISTINE [Suspect]
     Active Substance: VINCRISTINE
     Dosage: 0.9 MG, 1X/DAY:QD,
     Route: 015
     Dates: start: 20170809, end: 20170809
  14. 6?MERCAPTOPURINE MONOHYDRATE [Suspect]
     Active Substance: MERCAPTOPURINE
     Indication: ACUTE LYMPHOCYTIC LEUKAEMIA
     Route: 048
     Dates: start: 20170830, end: 20170830
  15. VINCRISTINE [Suspect]
     Active Substance: VINCRISTINE
     Dosage: 12 MG, 1X/DAY:QD,
     Route: 038
     Dates: start: 20170831, end: 20170831
  16. VINCRISTINE [Suspect]
     Active Substance: VINCRISTINE
     Dosage: 0.9 MG, 1X/DAY:QD,
     Route: 042
     Dates: start: 20170802, end: 20170802
  17. DEXAMETHASONE. [Suspect]
     Active Substance: DEXAMETHASONE
     Indication: ACUTE LYMPHOCYTIC LEUKAEMIA
     Dosage: 4 MILLIGRAM DAILY; 4 MG, 1X/DAY:QD
     Route: 048
     Dates: start: 20170802, end: 20171001

REACTIONS (1)
  - Hypertriglyceridaemia [Recovered/Resolved]

NARRATIVE: CASE EVENT DATE: 20170913
